FAERS Safety Report 13568643 (Version 1)
Quarter: 2017Q2

REPORT INFORMATION
  Report Type: Spontaneous
  Country: US (occurrence: US)
  Receive Date: 20170522
  Receipt Date: 20170522
  Transmission Date: 20170830
  Serious: No
  Sender: FDA-Public Use
  Company Number: None

PATIENT
  Age: 47 Year
  Sex: Female

DRUGS (1)
  1. FORTEO [Suspect]
     Active Substance: TERIPARATIDE
     Route: 058

REACTIONS (4)
  - Anaemia [None]
  - Transplant rejection [None]
  - Systemic lupus erythematosus [None]
  - Wound [None]

NARRATIVE: CASE EVENT DATE: 20170519
